FAERS Safety Report 4799171-7 (Version None)
Quarter: 2005Q4

REPORT INFORMATION
  Report Type: 
  Country: None (occurrence: None)
  Receive Date: 20051014
  Receipt Date: 20051004
  Transmission Date: 20060501
  Serious: Yes (Disabling)
  Sender: FDA-Public Use
  Company Number: US-MERCK-0510USA02530

PATIENT
  Sex: Male
  Weight: 118 kg

DRUGS (6)
  1. VIOXX [Suspect]
     Indication: ARTHRITIS
     Route: 048
     Dates: start: 20020101
  2. VIOXX [Suspect]
     Route: 048
     Dates: end: 20040930
  3. VIOXX [Suspect]
     Indication: ARTHRALGIA
     Route: 048
     Dates: start: 20020101
  4. VIOXX [Suspect]
     Route: 048
     Dates: end: 20040930
  5. BEXTRA [Concomitant]
     Route: 065
  6. IBUPROFEN [Concomitant]
     Route: 065

REACTIONS (1)
  - MYOCARDIAL INFARCTION [None]
